FAERS Safety Report 9536561 (Version 1)
Quarter: 2013Q3

REPORT INFORMATION
  Report Type: Spontaneous
  Country: JP (occurrence: JP)
  Receive Date: 20130919
  Receipt Date: 20130919
  Transmission Date: 20140515
  Serious: Yes (Life-Threatening, Hospitalization, Other)
  Sender: FDA-Public Use
  Company Number: JP-JNJFOC-20130907948

PATIENT
  Age: 3 Year
  Sex: Female

DRUGS (4)
  1. RISPERDAL [Suspect]
     Indication: PRODUCT USED FOR UNKNOWN INDICATION
     Route: 048
     Dates: start: 20120615, end: 20130418
  2. CERCINE [Suspect]
     Indication: PRODUCT USED FOR UNKNOWN INDICATION
     Route: 048
     Dates: start: 20120831, end: 20130418
  3. MOTONALIN [Suspect]
     Indication: POSTRESUSCITATION ENCEPHALOPATHY
     Route: 048
     Dates: start: 20121110, end: 20130411
  4. RAMELTEON [Concomitant]
     Dosage: 0.25MG/ KG
     Route: 048

REACTIONS (6)
  - Infantile asthma [Unknown]
  - Respiratory failure [Unknown]
  - Rhabdomyolysis [Unknown]
  - Rhinorrhoea [Unknown]
  - Off label use [Unknown]
  - Wrong technique in drug usage process [Unknown]
